FAERS Safety Report 24121089 (Version 3)
Quarter: 2024Q3

REPORT INFORMATION
  Report Type: Spontaneous
  Country: JP (occurrence: JP)
  Receive Date: 20240722
  Receipt Date: 20240820
  Transmission Date: 20241017
  Serious: Yes (Death, Hospitalization, Other)
  Sender: PFIZER
  Company Number: JP-PFIZER INC-2021229645

PATIENT
  Age: 81 Year
  Sex: Female
  Weight: 39 kg

DRUGS (5)
  1. LORBRENA [Suspect]
     Active Substance: LORLATINIB
     Indication: Non-small cell lung cancer
     Dosage: 100 MG, DAILY
     Route: 048
     Dates: start: 20190603, end: 20190616
  2. LORBRENA [Suspect]
     Active Substance: LORLATINIB
     Dosage: 75 MG, DAILY
     Dates: start: 20190617, end: 20200804
  3. LORBRENA [Suspect]
     Active Substance: LORLATINIB
     Dosage: 75 MG, DAILY
     Dates: start: 20200902, end: 20210202
  4. LORBRENA [Suspect]
     Active Substance: LORLATINIB
     Dosage: 50MG, DAILY
     Dates: start: 20210217, end: 20210915
  5. DONEPEZIL HYDROCHLORIDE [Suspect]
     Active Substance: DONEPEZIL HYDROCHLORIDE
     Dosage: UNK

REACTIONS (13)
  - Neoplasm progression [Fatal]
  - Aspartate aminotransferase increased [Recovering/Resolving]
  - Transaminases increased [Recovering/Resolving]
  - Pyrexia [Unknown]
  - Decreased appetite [Unknown]
  - Oedema peripheral [Recovering/Resolving]
  - Hepatic function abnormal [Recovering/Resolving]
  - Anaemia [Unknown]
  - Platelet count decreased [Recovered/Resolved]
  - Nervous system disorder [Unknown]
  - Blood triglycerides increased [Recovered/Resolved]
  - Blood cholesterol increased [Recovered/Resolved]
  - Weight decreased [Recovered/Resolved]

NARRATIVE: CASE EVENT DATE: 20190614
